FAERS Safety Report 8848629 (Version 1)
Quarter: 2012Q4

REPORT INFORMATION
  Report Type: 
  Country: US (occurrence: US)
  Receive Date: 20121018
  Receipt Date: 20121018
  Transmission Date: 20130627
  Serious: Yes (Hospitalization)
  Sender: FDA-Public Use
  Company Number: US-ROCHE-GNE011487

PATIENT
  Sex: Male
  Weight: 51.5 kg

DRUGS (9)
  1. PROTROPIN [Suspect]
     Indication: GROWTH HORMONE DEFICIENCY
     Route: 058
     Dates: start: 19920115
  2. INDERAL [Concomitant]
     Route: 065
  3. IMURAN [Concomitant]
     Route: 048
  4. CYCLOSPORINE [Concomitant]
     Route: 048
  5. KEFLEX [Concomitant]
     Route: 048
  6. ROCALTROL [Concomitant]
     Route: 048
  7. PREDNISONE [Concomitant]
     Route: 048
  8. SYNTHROID [Concomitant]
  9. PHENOBARBITAL [Concomitant]
     Route: 065
     Dates: start: 199306

REACTIONS (2)
  - Benign intracranial hypertension [Recovered/Resolved]
  - Papilloedema [Unknown]
